FAERS Safety Report 5927649-9 (Version None)
Quarter: 2008Q4

REPORT INFORMATION
  Report Type: 
  Country: None (occurrence: None)
  Receive Date: 20081023
  Receipt Date: 20081017
  Transmission Date: 20090506
  Serious: Yes (Life-Threatening, Hospitalization)
  Sender: FDA-Public Use
  Company Number: IT-BAYER-200828894GPV

PATIENT

DRUGS (6)
  1. CAMPATH [Suspect]
     Indication: PERIPHERAL T-CELL LYMPHOMA UNSPECIFIED
  2. CYCLOPHOSPHAMIDE [Suspect]
     Indication: PERIPHERAL T-CELL LYMPHOMA UNSPECIFIED
     Route: 065
  3. DOXORUBICIN HCL [Suspect]
     Indication: PERIPHERAL T-CELL LYMPHOMA UNSPECIFIED
     Route: 065
  4. VINCRISTINE [Suspect]
     Indication: PERIPHERAL T-CELL LYMPHOMA UNSPECIFIED
     Route: 065
  5. PREDNISONE TAB [Suspect]
     Indication: PERIPHERAL T-CELL LYMPHOMA UNSPECIFIED
  6. CYCLOSPORINE [Suspect]
     Indication: DRUG USE FOR UNKNOWN INDICATION
     Dates: start: 20070623, end: 20080926

REACTIONS (1)
  - THROMBOTIC THROMBOCYTOPENIC PURPURA [None]
